FAERS Safety Report 5843350-4 (Version None)
Quarter: 2008Q3

REPORT INFORMATION
  Report Type: 
  Country: None (occurrence: None)
  Receive Date: 20080813
  Receipt Date: 20070912
  Transmission Date: 20090109
  Serious: No
  Sender: FDA-Public Use
  Company Number: US-BAYER-US-2007-034457

PATIENT
  Age: 62 Year
  Sex: Male
  Weight: 91 kg

DRUGS (12)
  1. MAGNEVIST [Suspect]
     Indication: NUCLEAR MAGNETIC RESONANCE IMAGING BRAIN
     Dosage: TOTAL DAILY DOSE: 20 ML  UNIT DOSE: 20 ML
     Route: 042
     Dates: start: 20070912, end: 20070912
  2. POTASSIUM CHLORIDE [Concomitant]
  3. ASPIRIN [Concomitant]
     Dosage: AS USED: 325 MG
  4. ZOCOR [Concomitant]
  5. OXYCODONE HCL [Concomitant]
  6. LEXAPRO [Concomitant]
  7. ZETIA [Concomitant]
  8. PLAVIX [Concomitant]
  9. LASIX [Concomitant]
  10. TENORMIN [Concomitant]
  11. MENT AC [Concomitant]
  12. ISOVUE-300 [Concomitant]
     Dates: start: 20070912, end: 20070912

REACTIONS (2)
  - THROAT IRRITATION [None]
  - URTICARIA [None]
